FAERS Safety Report 5216434-1 (Version None)
Quarter: 2006Q4

REPORT INFORMATION
  Report Type: 
  Country: None (occurrence: None)
  Receive Date: 20061127
  Receipt Date: 20061016
  Transmission Date: 20070319
  Serious: Yes (Hospitalization, Other)
  Sender: FDA-Public Use
  Company Number: US-JNJFOC-20061004205

PATIENT
  Age: 22 Year
  Sex: Female
  Weight: 54.4316 kg

DRUGS (1)
  1. ORTHO TRI-CYCLEN LO [Suspect]
     Indication: CONTRACEPTION
     Dosage: 1 DOSE(S), 1 IN 1 DAY
     Dates: start: 20030101, end: 20061006

REACTIONS (2)
  - PULMONARY THROMBOSIS [None]
  - THROMBOSIS [None]
